FAERS Safety Report 25939715 (Version 2)
Quarter: 2025Q4

REPORT INFORMATION
  Report Type: Spontaneous
  Country: US (occurrence: US)
  Receive Date: 20251020
  Receipt Date: 20251027
  Transmission Date: 20260118
  Serious: No
  Sender: BRISTOL-MYERS SQUIBB COMPANY
  Company Number: US-BRISTOL-MYERS SQUIBB COMPANY-2025-142833

PATIENT
  Sex: Female

DRUGS (2)
  1. COBENFY [Suspect]
     Active Substance: TROSPIUM CHLORIDE\XANOMELINE
     Indication: Schizophrenia
     Dosage: SHE USED THE STARTER PACK; 2 DAYS 50/20
     Route: 048
  2. COBENFY [Suspect]
     Active Substance: TROSPIUM CHLORIDE\XANOMELINE
     Dosage: STRENGTH AND DOSE: 100/20 MG
     Route: 048
     Dates: start: 202509

REACTIONS (8)
  - Confusional state [Unknown]
  - Dehydration [Unknown]
  - Nausea [Unknown]
  - Palpitations [Unknown]
  - Weight decreased [Unknown]
  - Feeding disorder [Unknown]
  - Off label use [Unknown]
  - Vomiting [Unknown]

NARRATIVE: CASE EVENT DATE: 20250101
